FAERS Safety Report 4361066-0 (Version None)
Quarter: 2004Q2

REPORT INFORMATION
  Report Type: 
  Country: None (occurrence: None)
  Receive Date: 20040517
  Receipt Date: 20040506
  Transmission Date: 20050107
  Serious: Yes (Other)
  Sender: FDA-Public Use
  Company Number: 2004-04-1739

PATIENT
  Age: 54 Year
  Sex: Male
  Weight: 78 kg

DRUGS (3)
  1. PEG-INTRON (PEGINTERFERON ALFA-2B) INJECTABLE POWDER [Suspect]
     Indication: MYELOFIBROSIS
     Dosage: 50 MCG QD SUBCUTANEOUS
     Route: 058
     Dates: start: 20030601, end: 20040301
  2. INSULINE SEMILENTE MC INJECTABLE [Concomitant]
  3. VERAPAMIL [Concomitant]

REACTIONS (1)
  - PLASMACYTOMA [None]
